FAERS Safety Report 23601538 (Version 1)
Quarter: 2024Q1

REPORT INFORMATION
  Report Type: Spontaneous
  Country: DE (occurrence: DE)
  Receive Date: 20240306
  Receipt Date: 20240306
  Transmission Date: 20240410
  Serious: Yes (Life-Threatening, Other)
  Sender: FDA-Public Use
  Company Number: DE-FreseniusKabi-FK202403484

PATIENT
  Sex: Male

DRUGS (21)
  1. IRINOTECAN [Suspect]
     Active Substance: IRINOTECAN
     Indication: Colorectal cancer metastatic
     Dosage: FIRST LINE CHEMOTHERAPY FOLFIRI (IRINOTECAN 180 MG/M2, FOLINIC ACID 400 MG/M2,5-FLUOROURACIL BOLUS 4
  2. IRINOTECAN [Suspect]
     Active Substance: IRINOTECAN
     Dosage: 18 MORE CYCLES OF THIS DRUG REGIMEN UNTIL OCTOBER 2018
  3. IRINOTECAN [Suspect]
     Active Substance: IRINOTECAN
     Dosage: RE-ESCALATION TO FOLFIRI PLUS BEVACIZUMAB (ONE CYCLE)
  4. LEUCOVORIN [Suspect]
     Active Substance: LEUCOVORIN\LEUCOVORIN CALCIUM
     Indication: Colorectal cancer metastatic
     Dosage: FIRST LINE CHEMOTHERAPY FOLFIRI (IRINOTECAN 180 MG/M2, FOLINIC ACID 400 MG/M2,5-FLUOROURACIL BOLUS 4
  5. LEUCOVORIN [Suspect]
     Active Substance: LEUCOVORIN\LEUCOVORIN CALCIUM
     Dosage: THERAPY WAS DE-ESCALATED TO FUFA (FOLINIC ACID 400 MG/M2,5-FLUOROURACIL 2,400 MG/M2) CONTINUOUS INFU
  6. LEUCOVORIN [Suspect]
     Active Substance: LEUCOVORIN\LEUCOVORIN CALCIUM
     Dosage: 18 MORE CYCLES OF THIS DRUG REGIMEN UNTIL OCTOBER 2018
  7. LEUCOVORIN [Suspect]
     Active Substance: LEUCOVORIN\LEUCOVORIN CALCIUM
     Dosage: DE-ESCALATION TO MAINTENANCE FUFA PLUS BEVACIZUMAB FOLLOWED
  8. LEUCOVORIN [Suspect]
     Active Substance: LEUCOVORIN\LEUCOVORIN CALCIUM
     Dosage: RE-ESCALATION TO FOLFIRI PLUS BEVACIZUMAB (ONE CYCLE)
  9. FLUOROURACIL [Suspect]
     Active Substance: FLUOROURACIL
     Indication: Colorectal cancer metastatic
     Dosage: FIRST LINE CHEMOTHERAPY (FOLFIRI (IRINOTECAN 180 MG/M2, FOLINIC ACID 400 MG/M2,5-FLUOROURACIL BOLUS
  10. FLUOROURACIL [Suspect]
     Active Substance: FLUOROURACIL
     Dosage: FIRST LINE CHEMOTHERAPY (FOLFIRI (IRINOTECAN 180 MG/M2, FOLINIC ACID 400 MG/M2,5-FLUOROURACIL BOLUS
  11. FLUOROURACIL [Suspect]
     Active Substance: FLUOROURACIL
     Dosage: FUFA (CONTINUOUS INFUSION FOR 42 H, SCHEME REPEATED EVERY 2 WEEKS)
  12. FLUOROURACIL [Suspect]
     Active Substance: FLUOROURACIL
     Dosage: 18 MORE CYCLES OF THIS DRUG REGIMEN UNTIL OCTOBER 2018
  13. FLUOROURACIL [Suspect]
     Active Substance: FLUOROURACIL
     Dosage: DE-ESCALATION TO MAINTENANCE FUFA PLUS BEVACIZUMAB FOLLOWED
  14. FLUOROURACIL [Suspect]
     Active Substance: FLUOROURACIL
     Dosage: RE-ESCALATION TO FOLFIRI PLUS BEVACIZUMAB (ONE CYCLE)
  15. BEVACIZUMAB [Suspect]
     Active Substance: BEVACIZUMAB
     Indication: Colorectal cancer metastatic
     Dosage: (5 MG/KG BODY WEIGHT, REPEATED EVERY 2 WEEKS (FIRST-LINE CHEMOTHERAPY)
  16. BEVACIZUMAB [Suspect]
     Active Substance: BEVACIZUMAB
     Dosage: MAINTENANCE TREATMENT
  17. BEVACIZUMAB [Suspect]
     Active Substance: BEVACIZUMAB
     Dosage: 18 MORE CYCLES OF THIS DRUG REGIMEN UNTIL OCTOBER 2018
  18. BEVACIZUMAB [Suspect]
     Active Substance: BEVACIZUMAB
     Dosage: DE-ESCALATION TO MAINTENANCE FUFA PLUS BEVACIZUMAB FOLLOWED
  19. BEVACIZUMAB [Suspect]
     Active Substance: BEVACIZUMAB
     Dosage: RE-ESCALATION TO FOLFIRI PLUS BEVACIZUMAB (ONE CYCLE)
  20. DEXAMETHASONE [Concomitant]
     Active Substance: DEXAMETHASONE
     Indication: Premedication
  21. UNSPECIFIED INGREDIENT [Concomitant]
     Active Substance: UNSPECIFIED INGREDIENT
     Indication: Infection
     Dosage: ROA: INTRAVENOUS

REACTIONS (5)
  - Device related infection [Unknown]
  - Stomatitis [Unknown]
  - Anal inflammation [Unknown]
  - Diabetes mellitus [Unknown]
  - Impaired quality of life [Unknown]
